FAERS Safety Report 8811575 (Version 1)
Quarter: 2012Q4

REPORT INFORMATION
  Report Type: Spontaneous
  Country: US (occurrence: None)
  Receive Date: 20120921
  Receipt Date: 20120921
  Transmission Date: 20130627
  Serious: Yes (Hospitalization)
  Sender: FDA-Public Use
  Company Number: DSA_59711_2012

PATIENT
  Age: 64 Year
  Sex: Female

DRUGS (1)
  1. XENAZINE [Suspect]
     Indication: COORDINATION ABNORMAL
     Route: 048
     Dates: start: 20100701

REACTIONS (1)
  - Colonoscopy [None]
